FAERS Safety Report 24024085 (Version 3)
Quarter: 2024Q3

REPORT INFORMATION
  Report Type: Report from Study
  Country: IT (occurrence: IT)
  Receive Date: 20240627
  Receipt Date: 20240710
  Transmission Date: 20241016
  Serious: No
  Sender: ROCHE
  Company Number: IT-ROCHE-3522718

PATIENT
  Age: 59 Year

DRUGS (1)
  1. PHESGO [Suspect]
     Active Substance: HYALURONIDASE-ZZXF\PERTUZUMAB\TRASTUZUMAB
     Indication: Breast cancer stage IV
     Dosage: MOST RECENT DOSE- 12/DEC/2023?PERTUZUMAB:600MG TRASTUZUMAB:600MG?LAST DOSE RECEIVED ON 05/MAR/2024
     Route: 058
     Dates: start: 20231011, end: 20240126

REACTIONS (1)
  - Headache [Recovered/Resolved]

NARRATIVE: CASE EVENT DATE: 20240213
